FAERS Safety Report 7004987-2 (Version None)
Quarter: 2010Q3

REPORT INFORMATION
  Report Type: 
  Country: None (occurrence: None)
  Receive Date: 20100917
  Receipt Date: 20100908
  Transmission Date: 20110219
  Serious: Yes (Other)
  Sender: FDA-Public Use
  Company Number: 2010JP005359

PATIENT
  Age: 80 Year
  Sex: Female

DRUGS (2)
  1. PROTOPIC [Suspect]
     Indication: ORAL LICHEN PLANUS
     Dosage: TOPICAL
     Route: 061
  2. STEROID OINTMENT [Concomitant]

REACTIONS (2)
  - METASTASES TO LYMPH NODES [None]
  - TONGUE NEOPLASM MALIGNANT STAGE UNSPECIFIED [None]
